FAERS Safety Report 14347830 (Version 2)
Quarter: 2018Q1

REPORT INFORMATION
  Report Type: Report from Study
  Country: US (occurrence: US)
  Receive Date: 20180103
  Receipt Date: 20180212
  Transmission Date: 20180509
  Serious: No
  Sender: FDA-Public Use
  Company Number: PHEH2017US042364

PATIENT
  Sex: Male

DRUGS (2)
  1. ILARIS [Suspect]
     Active Substance: CANAKINUMAB
     Dosage: 150 MG, EVEY 8 WEEKS
     Route: 058
  2. ILARIS [Suspect]
     Active Substance: CANAKINUMAB
     Indication: MUCKLE-WELLS SYNDROME
     Dosage: 120 MG, UNK
     Route: 065
     Dates: start: 20171130

REACTIONS (1)
  - Incorrect dose administered [Unknown]
